FAERS Safety Report 6736696-9 (Version None)
Quarter: 2010Q2

REPORT INFORMATION
  Report Type: 
  Country: None (occurrence: None)
  Receive Date: 20100521
  Receipt Date: 20100513
  Transmission Date: 20101027
  Serious: Yes (Hospitalization, Other)
  Sender: FDA-Public Use
  Company Number: PHHO2010US03768

PATIENT

DRUGS (12)
  1. AFINITOR [Suspect]
     Indication: PLEURAL MESOTHELIOMA MALIGNANT
     Dosage: 10 MG, UNK
     Route: 048
     Dates: start: 20100201, end: 20100218
  2. AFINITOR [Suspect]
     Dosage: 5 MG, UNK
     Route: 048
     Dates: start: 20100301, end: 20100315
  3. AMITRIPTYLINE [Concomitant]
  4. COUMADIN [Concomitant]
     Indication: ATRIAL FIBRILLATION
  5. ATENOLOL [Concomitant]
  6. FOLIC ACID [Concomitant]
  7. GLIMEPIRIDE [Concomitant]
  8. HYDROCHLOROTHIAZIDE [Concomitant]
  9. IRBESARTAN [Concomitant]
  10. MIRALAX [Concomitant]
  11. SITAGLIPTIN [Concomitant]
  12. WARFARIN SODIUM [Concomitant]

REACTIONS (6)
  - EPISTAXIS [None]
  - FAECES DISCOLOURED [None]
  - HYPOKALAEMIA [None]
  - PANCYTOPENIA [None]
  - RECTAL HAEMORRHAGE [None]
  - THROMBOCYTOPENIA [None]
